FAERS Safety Report 26166132 (Version 2)
Quarter: 2025Q4

REPORT INFORMATION
  Report Type: Report from Study
  Country: US (occurrence: US)
  Receive Date: 20251216
  Receipt Date: 20251224
  Transmission Date: 20260118
  Serious: Yes (Hospitalization)
  Sender: ABBVIE
  Company Number: US-ABBVIE-6592327

PATIENT
  Age: 64 Year
  Sex: Male
  Weight: 122.46 kg

DRUGS (4)
  1. VYALEV [Suspect]
     Active Substance: FOSCARBIDOPA\FOSLEVODOPA
     Indication: Parkinson^s disease
     Dosage: CURRENTLY LOW IS .47, BASE .49 AND HIGH .51
     Route: 058
     Dates: start: 20250226, end: 2025
  2. VYALEV [Suspect]
     Active Substance: FOSCARBIDOPA\FOSLEVODOPA
     Dosage: BASE RATE:0.53; 24 HOUR INFUSION
     Route: 058
     Dates: start: 2025
  3. NEUPRO [Concomitant]
     Active Substance: ROTIGOTINE
     Indication: Parkinson^s disease
     Dosage: PATCH
  4. LOSARTAN [Concomitant]
     Active Substance: LOSARTAN
     Indication: Hypertension

REACTIONS (12)
  - Tremor [Recovered/Resolved]
  - Tremor [Recovering/Resolving]
  - Therapeutic product effect incomplete [Not Recovered/Not Resolved]
  - Therapeutic product effect incomplete [Unknown]
  - Infusion site discolouration [Not Recovered/Not Resolved]
  - Infusion site nodule [Not Recovered/Not Resolved]
  - Feeling abnormal [Recovered/Resolved]
  - Gait disturbance [Recovering/Resolving]
  - Infusion site infection [Recovered/Resolved]
  - Infusion site erythema [Not Recovered/Not Resolved]
  - Musculoskeletal stiffness [Recovering/Resolving]
  - Joint stiffness [Recovering/Resolving]

NARRATIVE: CASE EVENT DATE: 20250101
